FAERS Safety Report 23959514 (Version 1)
Quarter: 2024Q2

REPORT INFORMATION
  Report Type: Spontaneous
  Country: SA (occurrence: SA)
  Receive Date: 20240611
  Receipt Date: 20240611
  Transmission Date: 20240715
  Serious: Yes (Other)
  Sender: FDA-Public Use
  Company Number: SA-SA-2024SA167564

PATIENT
  Age: 32 Year
  Sex: Female

DRUGS (5)
  1. RIFAMPIN [Suspect]
     Active Substance: RIFAMPIN
     Indication: Pulmonary tuberculosis
     Dosage: UNK
  2. ETHAMBUTOL [Suspect]
     Active Substance: ETHAMBUTOL HYDROCHLORIDE
     Indication: Pulmonary tuberculosis
     Dosage: UNK
  3. LINEZOLID [Suspect]
     Active Substance: LINEZOLID
     Indication: Pulmonary tuberculosis
     Dosage: UNK
  4. MOXIFLOXACIN HYDROCHLORIDE [Suspect]
     Active Substance: MOXIFLOXACIN HYDROCHLORIDE\MOXIFLOXACIN HYDROCHLORIDE MONOHYDRATE
     Indication: Pulmonary tuberculosis
     Dosage: UNK
  5. PYRIDOXINE [Concomitant]
     Active Substance: PYRIDOXINE
     Indication: Pulmonary tuberculosis
     Dosage: UNK

REACTIONS (17)
  - Frostbite [Unknown]
  - Rash [Unknown]
  - Pallor [Unknown]
  - Livedo reticularis [Unknown]
  - Capillary disorder [Unknown]
  - Skin exfoliation [Unknown]
  - Blister rupture [Unknown]
  - Skin discolouration [Unknown]
  - Dry gangrene [Unknown]
  - Discharge [Unknown]
  - Haemorrhage [Unknown]
  - Joint stiffness [Unknown]
  - Foot deformity [Unknown]
  - Neuropathy peripheral [Unknown]
  - Pain in extremity [Unknown]
  - Peripheral swelling [Unknown]
  - Burning sensation [Unknown]
